FAERS Safety Report 11434042 (Version 7)
Quarter: 2019Q4

REPORT INFORMATION
  Report Type: Spontaneous
  Country: US (occurrence: US)
  Receive Date: 20150831
  Receipt Date: 20191129
  Transmission Date: 20200122
  Serious: Yes (Hospitalization, Other)
  Sender: FDA-Public Use
  Company Number: US-PFIZER INC-2015285828

PATIENT
  Age: 69 Year
  Sex: Female
  Weight: 86 kg

DRUGS (3)
  1. RAPAMUNE [Suspect]
     Active Substance: SIROLIMUS
     Dosage: 0.5 MG, DAILY
     Route: 048
     Dates: start: 20191108
  2. SYNTHROID [Concomitant]
     Active Substance: LEVOTHYROXINE SODIUM
     Dosage: UNK
  3. RAPAMUNE [Suspect]
     Active Substance: SIROLIMUS
     Indication: LIVER TRANSPLANT
     Dosage: UNK
     Dates: start: 2005

REACTIONS (8)
  - Off label use [Unknown]
  - Herpes zoster [Recovered/Resolved]
  - Product use in unapproved indication [Unknown]
  - Renal cell carcinoma recurrent [Unknown]
  - Encephalitis [Unknown]
  - Ophthalmic herpes zoster [Recovering/Resolving]
  - Herpes zoster infection neurological [Recovering/Resolving]
  - Blindness [Not Recovered/Not Resolved]

NARRATIVE: CASE EVENT DATE: 201108
